FAERS Safety Report 22638187 (Version 1)
Quarter: 2023Q2

REPORT INFORMATION
  Report Type: Spontaneous
  Country: US (occurrence: None)
  Receive Date: 20230623
  Receipt Date: 20230623
  Transmission Date: 20230721
  Serious: No
  Sender: FDA-Public Use
  Company Number: None

PATIENT
  Age: 75 Year
  Sex: Female

DRUGS (2)
  1. PRAVASTATIN [Suspect]
     Active Substance: PRAVASTATIN
     Indication: Aortic arteriosclerosis
  2. ROSUVASTATIN [Suspect]
     Active Substance: ROSUVASTATIN
     Indication: Aortic arteriosclerosis

REACTIONS (3)
  - Tremor [None]
  - Hypoaesthesia [None]
  - Hypoaesthesia [None]

NARRATIVE: CASE EVENT DATE: 20230623
